FAERS Safety Report 13497557 (Version 1)
Quarter: 2017Q2

REPORT INFORMATION
  Report Type: Spontaneous
  Country: US (occurrence: US)
  Receive Date: 20170501
  Receipt Date: 20170501
  Transmission Date: 20170830
  Serious: Yes (Hospitalization, Other)
  Sender: FDA-Public Use
  Company Number: US-CIPLA LTD.-2017US07874

PATIENT

DRUGS (20)
  1. CARBOPLATIN. [Suspect]
     Active Substance: CARBOPLATIN
     Dosage: 8 AUC, ON DAYS 1 TO 3, EVERY 21 DAYS
     Route: 042
  2. BLEOMYCIN [Suspect]
     Active Substance: BLEOMYCIN SULFATE
     Indication: TESTICULAR CANCER METASTATIC
     Dosage: UNK, TWO CYCLES
     Route: 065
     Dates: start: 201505
  3. IFOSFAMIDE. [Suspect]
     Active Substance: IFOSFAMIDE
     Dosage: 2000 MG/M2, ON DAYS 2 TO 4, EVERY 14 DAYS, FOR 2 CYCLES
     Route: 042
  4. VANCOMYCIN [Suspect]
     Active Substance: VANCOMYCIN
     Indication: EVIDENCE BASED TREATMENT
     Dosage: 1250 MG, BID
     Route: 042
  5. VANCOMYCIN [Suspect]
     Active Substance: VANCOMYCIN
     Indication: SEPTIC SHOCK
  6. FLUCONAZOLE. [Suspect]
     Active Substance: FLUCONAZOLE
     Indication: PROPHYLAXIS
     Dosage: 200 MG, DAILY
     Route: 048
  7. CEFEPIME [Suspect]
     Active Substance: CEFEPIME HYDROCHLORIDE
     Indication: EVIDENCE BASED TREATMENT
     Dosage: 2 G, DAILY
     Route: 042
  8. MESNA. [Concomitant]
     Active Substance: MESNA
     Indication: SUPPORTIVE CARE
     Dosage: UNK, ON DAYS 2 TO 4, EVERY 14 DAYS, FOR 2 CYCLES
     Route: 065
  9. ETOPOSIDE. [Suspect]
     Active Substance: ETOPOSIDE
     Dosage: 400 MG/M2, ON DAYS 1 TO 3, EVERY 21 DAYS
     Route: 042
  10. GRANULOCYTE-COLONY STIMULATING FACTOR [Concomitant]
     Active Substance: FILGRASTIM
     Dosage: 10 MCG/KG PER DAY ON DAYS 4 TO 14, , EVERY 14 DAYS, FOR 2 CYCLES
     Route: 065
  11. CEFEPIME [Suspect]
     Active Substance: CEFEPIME HYDROCHLORIDE
     Indication: SEPTIC SHOCK
     Dosage: 2 G, EVERY 8 HOURS
     Route: 042
  12. ETOPOSIDE. [Suspect]
     Active Substance: ETOPOSIDE
     Indication: TESTICULAR CANCER METASTATIC
     Dosage: UNK, TWO CYCLES (BEP)
     Route: 065
     Dates: start: 201505
  13. IFOSFAMIDE. [Suspect]
     Active Substance: IFOSFAMIDE
     Indication: TESTIS CANCER
     Dosage: UNK, TWO CYCLES (VIP)
     Route: 065
     Dates: start: 201506
  14. CIPROFLOXACIN. [Suspect]
     Active Substance: CIPROFLOXACIN
     Dosage: 500 MG, BID
     Route: 048
  15. GRANULOCYTE-COLONY STIMULATING FACTOR [Concomitant]
     Active Substance: FILGRASTIM
     Dosage: 10 MCG/KG PER DAY, ON DAYS 3 TO 21, EVRY 21 DAYS
     Route: 065
  16. CISPLATIN. [Suspect]
     Active Substance: CISPLATIN
     Indication: TESTICULAR CANCER METASTATIC
     Dosage: UNK, TWO CYCLES
     Route: 065
     Dates: start: 201505
  17. ETOPOSIDE. [Suspect]
     Active Substance: ETOPOSIDE
     Dosage: UNK, TWO CYCLES (VIP)
     Route: 065
     Dates: start: 201506
  18. PACLITAXEL. [Suspect]
     Active Substance: PACLITAXEL
     Indication: TESTICULAR GERM CELL TUMOUR
     Dosage: 250 MG/M2, OVER 24 HOURS ON DAY 1, EVERY 14 DAYS, , EVERY 14 DAYS, FOR 2 CYCLES
     Route: 042
  19. ACYCLOVIR. [Suspect]
     Active Substance: ACYCLOVIR
     Indication: PROPHYLAXIS
     Dosage: 800 MG, BID
     Route: 048
  20. MEROPENEM. [Suspect]
     Active Substance: MEROPENEM
     Indication: SEPTIC SHOCK
     Dosage: 500 MG, EVERY 6 HOURS
     Route: 042

REACTIONS (9)
  - Abnormal behaviour [Unknown]
  - Lung disorder [Unknown]
  - Febrile neutropenia [Recovered/Resolved]
  - Disease recurrence [Unknown]
  - Drug ineffective [Unknown]
  - Rhabdomyolysis [Recovered/Resolved]
  - Clostridium difficile colitis [Unknown]
  - Streptococcal sepsis [Recovered/Resolved]
  - Confusional state [Unknown]
